FAERS Safety Report 17516982 (Version 1)
Quarter: 2020Q1

REPORT INFORMATION
  Report Type: Spontaneous
  Country: US (occurrence: US)
  Receive Date: 20200228
  Receipt Date: 20200228
  Transmission Date: 20200409
  Serious: No
  Sender: FDA-Public Use
  Company Number: None

PATIENT
  Age: 70 Year
  Sex: Female

DRUGS (1)
  1. AUBAGIO [Suspect]
     Active Substance: TERIFLUNOMIDE
     Dosage: ?          OTHER DOSE:14;?
     Route: 048
     Dates: start: 201710

REACTIONS (2)
  - Dyspepsia [None]
  - Increased appetite [None]

NARRATIVE: CASE EVENT DATE: 20200228
